FAERS Safety Report 7190881 (Version 5)
Quarter: 2017Q4

REPORT INFORMATION
  Report Type: Spontaneous
  Country: GB (occurrence: GB)
  Receive Date: 20091112
  Receipt Date: 20171228
  Transmission Date: 20180321
  Serious: Yes (Life-Threatening, Hospitalization, Disabling)
  Sender: FDA-Public Use
  Company Number: GB-DEXPHARM-2006-1342

PATIENT
  Age: 63 Year
  Sex: Male
  Weight: 80 kg

DRUGS (6)
  1. LOSEC [Suspect]
     Active Substance: OMEPRAZOLE
     Indication: GASTROOESOPHAGEAL REFLUX DISEASE
     Route: 048
     Dates: start: 200606
  2. PANTOZOL [Suspect]
     Active Substance: PANTOPRAZOLE SODIUM
     Indication: GASTROOESOPHAGEAL REFLUX DISEASE
  3. LOSEC [Suspect]
     Active Substance: OMEPRAZOLE
     Indication: GASTROOESOPHAGEAL REFLUX DISEASE
     Route: 048
     Dates: start: 2002, end: 200605
  4. ACIPHEX [Suspect]
     Active Substance: RABEPRAZOLE SODIUM
  5. OMEPRAZOLE. [Suspect]
     Active Substance: OMEPRAZOLE
     Dosage: MULTIPLE INJECTIONS (SEE CASE SUMMARY)
     Route: 042
     Dates: start: 20050505, end: 20060617
  6. LANSOPRAZOLE. [Suspect]
     Active Substance: LANSOPRAZOLE
     Dates: start: 20060725, end: 20060808

REACTIONS (5)
  - Tetanus [Unknown]
  - Tetany [Unknown]
  - Hypoparathyroidism secondary [Unknown]
  - Hypocalcaemia [Recovered/Resolved]
  - Hypomagnesaemia [Recovered/Resolved]

NARRATIVE: CASE EVENT DATE: 2003
